FAERS Safety Report 20351366 (Version 1)
Quarter: 2022Q1

REPORT INFORMATION
  Report Type: Spontaneous
  Country: US (occurrence: None)
  Receive Date: 20220118
  Receipt Date: 20220118
  Transmission Date: 20220424
  Serious: Yes (unspecified)
  Sender: FDA-Public Use
  Company Number: None

PATIENT
  Age: 66 Year
  Sex: Male
  Weight: 115.24 kg

DRUGS (8)
  1. PRIVIGEN [Suspect]
     Active Substance: HUMAN IMMUNOGLOBULIN G
     Indication: Hypogammaglobulinaemia
     Route: 041
     Dates: start: 20220118, end: 20220118
  2. Diphenhydramine 25 mg tablet [Concomitant]
     Dates: start: 20220118, end: 20220118
  3. Meperidine 37.5 mg IV [Concomitant]
     Dates: start: 20220118, end: 20220118
  4. Acetaminophen 325 mg tablets - 2 tablets x 1 dose [Concomitant]
     Dates: start: 20220118, end: 20220118
  5. Amoxicillin/Clavulanate 875 mg/125 mg [Concomitant]
     Dates: start: 20220110
  6. Verapamil 120 mg extended release tablet [Concomitant]
  7. Lisinopril/Hydrochlorothiazide 20 mg/25 mg [Concomitant]
  8. Metformin 1000 mg tablet [Concomitant]

REACTIONS (3)
  - Infusion related reaction [None]
  - Chills [None]
  - Fatigue [None]

NARRATIVE: CASE EVENT DATE: 20220118
